FAERS Safety Report 6699967-0 (Version None)
Quarter: 2010Q2

REPORT INFORMATION
  Report Type: 
  Country: None (occurrence: None)
  Receive Date: 20100428
  Receipt Date: 20100426
  Transmission Date: 20101027
  Serious: Yes (Hospitalization, Other)
  Sender: FDA-Public Use
  Company Number: IT-ROXANE LABORATORIES, INC.-2010-RO-00467RO

PATIENT
  Age: 32 Year
  Sex: Male

DRUGS (7)
  1. ZOLPIDEM [Suspect]
     Indication: INSOMNIA
  2. ZOLPIDEM [Suspect]
  3. ZOLPIDEM [Suspect]
  4. LITHIUM CARBONATE [Concomitant]
     Indication: BIPOLAR I DISORDER
     Dosage: 800 MG
  5. LITHIUM CARBONATE [Concomitant]
     Indication: BORDERLINE PERSONALITY DISORDER
  6. QUETIAPINE [Concomitant]
     Indication: BIPOLAR I DISORDER
     Dosage: 300 MG
  7. QUETIAPINE [Concomitant]
     Indication: BORDERLINE PERSONALITY DISORDER

REACTIONS (14)
  - ACTIVITIES OF DAILY LIVING IMPAIRED [None]
  - AGITATION [None]
  - ANXIETY [None]
  - CONFUSIONAL STATE [None]
  - DEPRESSED MOOD [None]
  - DISORIENTATION [None]
  - DRUG INEFFECTIVE [None]
  - EMOTIONAL DISTRESS [None]
  - FEELING GUILTY [None]
  - FEELINGS OF WORTHLESSNESS [None]
  - HALLUCINATION, AUDITORY [None]
  - INTENTIONAL OVERDOSE [None]
  - INTENTIONAL SELF-INJURY [None]
  - SELF ESTEEM DECREASED [None]
